FAERS Safety Report 10580682 (Version 1)
Quarter: 2014Q4

REPORT INFORMATION
  Report Type: Spontaneous
  Country: CA (occurrence: CA)
  Receive Date: 20141113
  Receipt Date: 20141113
  Transmission Date: 20150529
  Serious: Yes (Hospitalization)
  Sender: FDA-Public Use
  Company Number: CA-ROCHE-1488637

PATIENT
  Age: 48 Year
  Sex: Female
  Weight: 70.37 kg

DRUGS (4)
  1. RIBAVIRIN. [Suspect]
     Active Substance: RIBAVIRIN
     Indication: PRODUCT USED FOR UNKNOWN INDICATION
     Route: 065
  2. PHENOL. [Concomitant]
     Active Substance: PHENOL
  3. PEGASYS [Suspect]
     Active Substance: PEGINTERFERON ALFA-2A
     Indication: PRODUCT USED FOR UNKNOWN INDICATION
     Route: 065
  4. VICTRELIS [Suspect]
     Active Substance: BOCEPREVIR
     Indication: PRODUCT USED FOR UNKNOWN INDICATION
     Dosage: THERAPY DURATION: 27 DAYS
     Route: 048

REACTIONS (35)
  - Confusional state [Unknown]
  - Neuralgia [Unknown]
  - Pain [Recovering/Resolving]
  - Tinnitus [Recovering/Resolving]
  - Mental impairment [Unknown]
  - Panic attack [Unknown]
  - Partial seizures [Unknown]
  - Chills [Recovering/Resolving]
  - Eye irritation [Recovering/Resolving]
  - Dyskinesia [Unknown]
  - Insomnia [Unknown]
  - Speech disorder [Unknown]
  - Body temperature decreased [Recovering/Resolving]
  - Eye pain [Recovering/Resolving]
  - Hot flush [Recovering/Resolving]
  - Paraesthesia [Recovering/Resolving]
  - Haemoglobin decreased [Recovering/Resolving]
  - Hypoaesthesia [Recovering/Resolving]
  - Alopecia [Unknown]
  - Seizure [Unknown]
  - Headache [Unknown]
  - Tremor [Unknown]
  - Communication disorder [Recovering/Resolving]
  - Feeling abnormal [Recovering/Resolving]
  - Neutropenia [Recovering/Resolving]
  - Arthralgia [Recovering/Resolving]
  - Anxiety [Unknown]
  - Burning sensation [Unknown]
  - Dyspnoea [Unknown]
  - Fatigue [Recovering/Resolving]
  - Loss of consciousness [Recovering/Resolving]
  - Aggression [Unknown]
  - Disturbance in attention [Unknown]
  - Irritability [Unknown]
  - Ear pain [Recovering/Resolving]
